FAERS Safety Report 6488516-8 (Version None)
Quarter: 2009Q4

REPORT INFORMATION
  Report Type: 
  Country: None (occurrence: None)
  Receive Date: 20091210
  Receipt Date: 20090831
  Transmission Date: 20100525
  Serious: No
  Sender: FDA-Public Use
  Company Number: US-AMGEN-KDL362513

PATIENT
  Sex: Female

DRUGS (1)
  1. ENBREL [Suspect]
     Indication: RHEUMATOID ARTHRITIS
     Dates: start: 20050801

REACTIONS (4)
  - ABDOMINAL DISCOMFORT [None]
  - DYSPEPSIA [None]
  - HEADACHE [None]
  - RESPIRATORY TRACT INFECTION [None]
